FAERS Safety Report 6446335-2 (Version None)
Quarter: 2009Q4

REPORT INFORMATION
  Report Type: 
  Country: None (occurrence: None)
  Receive Date: 20091116
  Receipt Date: 20091108
  Transmission Date: 20100525
  Serious: Yes (Hospitalization)
  Sender: FDA-Public Use
  Company Number: 2009SP035122

PATIENT
  Age: 20 Year
  Sex: Male

DRUGS (7)
  1. ALBUTEROL [Suspect]
     Indication: DRUG USE FOR UNKNOWN INDICATION
     Dosage: PO
     Route: 048
  2. CLARINEX [Suspect]
     Indication: DRUG USE FOR UNKNOWN INDICATION
     Dosage: PO
     Route: 048
  3. ASMANEX TWISTHALER [Suspect]
     Indication: DRUG USE FOR UNKNOWN INDICATION
     Dosage: PO
     Route: 048
  4. ZICAM [Suspect]
     Indication: DRUG USE FOR UNKNOWN INDICATION
  5. DOXYCYCLINE [Concomitant]
  6. SINGULAIR [Concomitant]
  7. SEREVENT [Concomitant]

REACTIONS (7)
  - BACK PAIN [None]
  - HEADACHE [None]
  - INCOHERENT [None]
  - MUSCLE SPASMS [None]
  - MUSCULOSKELETAL PAIN [None]
  - NECK PAIN [None]
  - PYREXIA [None]
